FAERS Safety Report 23197445 (Version 1)
Quarter: 2023Q4

REPORT INFORMATION
  Report Type: Spontaneous
  Country: US (occurrence: None)
  Receive Date: 20231117
  Receipt Date: 20231117
  Transmission Date: 20240109
  Serious: Yes (Other)
  Sender: FDA-Public Use
  Company Number: None

PATIENT
  Age: 42 Year
  Sex: Female
  Weight: 117 kg

DRUGS (25)
  1. DUPIXENT [Suspect]
     Active Substance: DUPILUMAB
     Indication: Asthma
  2. LEVOTHYROXINE [Concomitant]
     Active Substance: LEVOTHYROXINE
  3. METFORMIN [Concomitant]
     Active Substance: METFORMIN HYDROCHLORIDE
  4. OZEMPIC [Concomitant]
     Active Substance: SEMAGLUTIDE
  5. FASENRA [Concomitant]
     Active Substance: BENRALIZUMAB
  6. TRELEGY ELLIPTA [Concomitant]
     Active Substance: FLUTICASONE FUROATE\UMECLIDINIUM BROMIDE\VILANTEROL TRIFENATATE
  7. ONDANSETRON [Concomitant]
     Active Substance: ONDANSETRON
  8. ALBUTEROL RESCUE INHALER [Concomitant]
  9. ALBUTEROL VIA NEBULIZER [Concomitant]
  10. FLONASE [Concomitant]
     Active Substance: FLUTICASONE PROPIONATE
  11. BENZONATATE [Concomitant]
     Active Substance: BENZONATATE
  12. LORATADINE [Concomitant]
     Active Substance: LORATADINE
  13. DIPHENHYDRAMINE [Concomitant]
     Active Substance: DIPHENHYDRAMINE
  14. HYDROXYCHLOROQUINE [Concomitant]
     Active Substance: HYDROXYCHLOROQUINE
  15. CYCLOBENZAPRINE [Concomitant]
     Active Substance: CYCLOBENZAPRINE
  16. DICLOFENAC [Concomitant]
     Active Substance: DICLOFENAC
  17. PREDNISONE [Concomitant]
     Active Substance: PREDNISONE
  18. DULOXETINE [Concomitant]
     Active Substance: DULOXETINE
  19. GABAPENTIN [Concomitant]
     Active Substance: GABAPENTIN
  20. VOLTAREN [Concomitant]
     Active Substance: DICLOFENAC SODIUM
  21. BUPRENORPHINE [Concomitant]
     Active Substance: BUPRENORPHINE
  22. TRAMADOL [Concomitant]
     Active Substance: TRAMADOL\TRAMADOL HYDROCHLORIDE
  23. NURTEC ODT [Concomitant]
     Active Substance: RIMEGEPANT SULFATE
  24. METRONIDAZOLE [Concomitant]
     Active Substance: METRONIDAZOLE
  25. DIPHENHYDRAMINE [Concomitant]
     Active Substance: DIPHENHYDRAMINE

REACTIONS (4)
  - Visual acuity reduced [None]
  - Tooth loss [None]
  - Bone graft [None]
  - Tooth extraction [None]

NARRATIVE: CASE EVENT DATE: 20190619
